FAERS Safety Report 7227735-X (Version None)
Quarter: 2011Q1

REPORT INFORMATION
  Report Type: 
  Country: None (occurrence: None)
  Receive Date: 20110111
  Receipt Date: 20110111
  Transmission Date: 20110831
  Serious: Yes (Other)
  Sender: FDA-Public Use
  Company Number: None

PATIENT
  Sex: Female
  Weight: 104.3273 kg

DRUGS (1)
  1. LAMICTAL [Suspect]
     Indication: BIPOLAR I DISORDER
     Dosage: 25 MG 1 DAILY FOR 2 WKS PO
     Route: 048
     Dates: start: 20101223, end: 20101224

REACTIONS (2)
  - INSOMNIA [None]
  - SPEECH DISORDER [None]
